FAERS Safety Report 21859076 (Version 1)
Quarter: 2023Q1

REPORT INFORMATION
  Report Type: Report from Study
  Country: CZ (occurrence: None)
  Receive Date: 20230113
  Receipt Date: 20230113
  Transmission Date: 20230418
  Serious: Yes (Hospitalization)
  Sender: FDA-Public Use
  Company Number: CZ-ROCHE-1214823

PATIENT
  Age: 45 Year
  Sex: Female
  Weight: 73 kg

DRUGS (38)
  1. OCRELIZUMAB [Suspect]
     Active Substance: OCRELIZUMAB
     Indication: Relapsing-remitting multiple sclerosis
     Dosage: BASELINE WEEK 1
     Route: 042
     Dates: start: 20120327, end: 20120327
  2. OCRELIZUMAB [Suspect]
     Active Substance: OCRELIZUMAB
     Dosage: WEEK 2
     Route: 042
     Dates: start: 20120411, end: 20120411
  3. OCRELIZUMAB [Suspect]
     Active Substance: OCRELIZUMAB
     Dosage: WEEK 24
     Route: 042
     Dates: start: 20120910, end: 20120910
  4. OCRELIZUMAB [Suspect]
     Active Substance: OCRELIZUMAB
     Dosage: WEEK 48
     Route: 042
     Dates: start: 20130226, end: 20130226
  5. OCRELIZUMAB [Suspect]
     Active Substance: OCRELIZUMAB
     Dosage: WEEK 72
     Route: 042
     Dates: start: 20130813, end: 20130813
  6. PLACEBO [Suspect]
     Active Substance: UNSPECIFIED INGREDIENT
     Indication: Relapsing-remitting multiple sclerosis
     Dosage: LAST DOSE PRIOR TO SAE ONSET: 10/APR/2013.?THERAPY WAS TEMPORARILY INTERRUPTED ON 12/APR/2013 BEFORE
     Route: 058
     Dates: start: 20120327, end: 20130412
  7. PLACEBO [Suspect]
     Active Substance: UNSPECIFIED INGREDIENT
     Dosage: THERAPY WAS TEMPORARILY INTERRUPTED ON 12/APR/2013 BEFORE BEING RESTARTED ON 22/APR/2013.
     Route: 058
     Dates: start: 20130422
  8. BISULEPIN [Concomitant]
     Active Substance: BISULEPIN
     Dosage: BASELINE
     Dates: start: 20120327
  9. BISULEPIN [Concomitant]
     Active Substance: BISULEPIN
     Dosage: WEEK 2
     Dates: start: 20120411
  10. BISULEPIN [Concomitant]
     Active Substance: BISULEPIN
     Dosage: WEEK 24
     Dates: start: 20120910
  11. BISULEPIN [Concomitant]
     Active Substance: BISULEPIN
     Dosage: WEEK 48
     Dates: start: 20130226, end: 20130226
  12. BISULEPIN [Concomitant]
     Active Substance: BISULEPIN
     Dates: start: 20130813, end: 20130813
  13. METHYLPREDNISOLONE ACEPONATE [Concomitant]
     Active Substance: METHYLPREDNISOLONE ACEPONATE
     Dosage: 1 UNIT
     Dates: start: 201005
  14. ESCITALOPRAM OXALATE [Concomitant]
     Active Substance: ESCITALOPRAM OXALATE
     Dates: start: 200909
  15. ESCITALOPRAM OXALATE [Concomitant]
     Active Substance: ESCITALOPRAM OXALATE
  16. CALTRATE [Concomitant]
     Active Substance: CALCIUM CARBONATE
     Dates: start: 20090918
  17. SORBIFER [Concomitant]
     Dates: start: 20100224
  18. LYRICA [Concomitant]
     Active Substance: PREGABALIN
     Dates: start: 20120910
  19. ENOXAPARIN SODIUM [Concomitant]
     Active Substance: ENOXAPARIN SODIUM
     Dates: start: 20130412, end: 20130419
  20. METHYLPREDNISOLONE [Concomitant]
     Active Substance: METHYLPREDNISOLONE
     Dosage: BASELINE
     Dates: start: 20120327, end: 20120327
  21. METHYLPREDNISOLONE [Concomitant]
     Active Substance: METHYLPREDNISOLONE
     Dosage: WEEK 2
     Dates: start: 20120411, end: 20120411
  22. METHYLPREDNISOLONE [Concomitant]
     Active Substance: METHYLPREDNISOLONE
     Dosage: WEEK 24
     Dates: start: 20120910, end: 20120910
  23. METHYLPREDNISOLONE [Concomitant]
     Active Substance: METHYLPREDNISOLONE
     Dosage: WEEK 48
     Dates: start: 20130226, end: 20130226
  24. METHYLPREDNISOLONE [Concomitant]
     Active Substance: METHYLPREDNISOLONE
     Dates: start: 20120110, end: 20120111
  25. METHYLPREDNISOLONE [Concomitant]
     Active Substance: METHYLPREDNISOLONE
     Dates: start: 20120112, end: 20120115
  26. METHYLPREDNISOLONE [Concomitant]
     Active Substance: METHYLPREDNISOLONE
     Dates: start: 20120116, end: 20120117
  27. METHYLPREDNISOLONE [Concomitant]
     Active Substance: METHYLPREDNISOLONE
     Dates: start: 20120807, end: 20120809
  28. METHYLPREDNISOLONE [Concomitant]
     Active Substance: METHYLPREDNISOLONE
     Dates: start: 20130813, end: 20130813
  29. NOLICIN [Concomitant]
     Dates: start: 20130412, end: 20130421
  30. HYDROCORTISONE [Concomitant]
     Active Substance: HYDROCORTISONE
     Dates: start: 20130226, end: 20130226
  31. SOLU-MEDROL [Concomitant]
     Active Substance: METHYLPREDNISOLONE SODIUM SUCCINATE
     Dates: start: 20120110, end: 20120111
  32. SOLU-MEDROL [Concomitant]
     Active Substance: METHYLPREDNISOLONE SODIUM SUCCINATE
     Dates: start: 20120112, end: 20120115
  33. SOLU-MEDROL [Concomitant]
     Active Substance: METHYLPREDNISOLONE SODIUM SUCCINATE
     Dates: start: 20120116, end: 20120117
  34. SOLU-MEDROL [Concomitant]
     Active Substance: METHYLPREDNISOLONE SODIUM SUCCINATE
     Dates: start: 20120807, end: 20120809
  35. REBIF [Concomitant]
     Active Substance: INTERFERON BETA-1A
     Dates: start: 201005, end: 20120224
  36. CALCIUM GLUCONICUM [Concomitant]
     Dates: start: 20130226, end: 20130226
  37. LYRICA [Concomitant]
     Active Substance: PREGABALIN
     Dates: start: 20131014
  38. BACLOFEN [Concomitant]
     Active Substance: BACLOFEN
     Dates: start: 20131014

REACTIONS (1)
  - Cardiac failure congestive [Recovered/Resolved]

NARRATIVE: CASE EVENT DATE: 20130301
